FAERS Safety Report 5201995-9 (Version None)
Quarter: 2007Q1

REPORT INFORMATION
  Report Type: 
  Country: None (occurrence: None)
  Receive Date: 20070109
  Receipt Date: 20070103
  Transmission Date: 20070707
  Serious: Yes (Hospitalization)
  Sender: FDA-Public Use
  Company Number: 2007UW00114

PATIENT
  Age: 37 Year
  Sex: Female
  Weight: 80.7 kg

DRUGS (4)
  1. SEROQUEL [Suspect]
     Indication: BIPOLAR II DISORDER
     Route: 048
  2. LAMICTAL [Concomitant]
  3. PROZAC [Concomitant]
  4. CYMBALTA [Concomitant]

REACTIONS (9)
  - AGGRESSION [None]
  - CONFUSIONAL STATE [None]
  - DYSARTHRIA [None]
  - GAIT DISTURBANCE [None]
  - HYPOTENSION [None]
  - MEMORY IMPAIRMENT [None]
  - MOTOR DYSFUNCTION [None]
  - MUSCLE TWITCHING [None]
  - RESTLESS LEGS SYNDROME [None]
